FAERS Safety Report 6130424-6 (Version None)
Quarter: 2009Q1

REPORT INFORMATION
  Report Type: 
  Country: None (occurrence: None)
  Receive Date: 20090324
  Receipt Date: 20090313
  Transmission Date: 20090719
  Serious: Yes (Hospitalization)
  Sender: FDA-Public Use
  Company Number: HR-ELI_LILLY_AND_COMPANY-HR200903003946

PATIENT
  Sex: Male

DRUGS (4)
  1. ZYPREXA [Suspect]
     Indication: SCHIZOPHRENIA
     Route: 048
     Dates: start: 20080110
  2. ZYPREXA [Suspect]
     Dosage: 15 MG, UNK
     Route: 048
     Dates: start: 20080214, end: 20080227
  3. ZYPREXA [Suspect]
     Dosage: 20 MG, 2/D
     Route: 048
     Dates: start: 20080228, end: 20080301
  4. DIAZEPAM [Concomitant]
     Indication: SCHIZOPHRENIA
     Dosage: 10 MG, 2/D
     Dates: start: 20080110

REACTIONS (3)
  - HOSPITALISATION [None]
  - HYPERGLYCAEMIA [None]
  - OVERDOSE [None]
